FAERS Safety Report 25543581 (Version 2)
Quarter: 2025Q3

REPORT INFORMATION
  Report Type: Spontaneous
  Country: US (occurrence: US)
  Receive Date: 20250711
  Receipt Date: 20250715
  Transmission Date: 20251020
  Serious: Yes (Hospitalization)
  Sender: PFIZER
  Company Number: US-PFIZER INC-202500139426

PATIENT
  Age: 59 Year
  Sex: Female
  Weight: 57.61 kg

DRUGS (4)
  1. LITFULO [Suspect]
     Active Substance: RITLECITINIB TOSYLATE
     Indication: Alopecia
     Dosage: 50 MG, 1X/DAY
     Route: 048
     Dates: start: 2024, end: 20250708
  2. SYNTHROID [Concomitant]
     Active Substance: LEVOTHYROXINE SODIUM
     Indication: Thyroid disorder
     Dosage: 75MCG TABLET ONCE A DAY BY MOUTH
     Route: 048
  3. PRAVASTATIN [Concomitant]
     Active Substance: PRAVASTATIN
     Indication: Blood cholesterol abnormal
     Dosage: 10MG TABLET AT NIGHT BY MOUTH
     Route: 048
  4. FOLIC ACID\METHYLCOBALAMIN [Concomitant]
     Active Substance: FOLIC ACID\METHYLCOBALAMIN
     Indication: Vitamin supplementation
     Dosage: FOUR CAPSULES ONCE A DAY BY MOUTH
     Route: 048

REACTIONS (7)
  - Palpitations [Unknown]
  - Sinus bradycardia [Unknown]
  - Sinus tachycardia [Unknown]
  - Supraventricular extrasystoles [Unknown]
  - Ventricular extrasystoles [Unknown]
  - Intentional dose omission [Unknown]
  - Anaemia [Unknown]

NARRATIVE: CASE EVENT DATE: 20250101
